FAERS Safety Report 16219202 (Version 2)
Quarter: 2019Q2

REPORT INFORMATION
  Report Type: Spontaneous
  Country: CO (occurrence: CO)
  Receive Date: 20190419
  Receipt Date: 20190430
  Transmission Date: 20190711
  Serious: Yes (Hospitalization, Other)
  Sender: FDA-Public Use
  Company Number: CO-BIOMARINAP-CO-2019-123219

PATIENT
  Age: 6 Year
  Sex: Female

DRUGS (1)
  1. ALDURAZYME [Suspect]
     Active Substance: LARONIDASE
     Indication: MUCOPOLYSACCHARIDOSIS I
     Dosage: 3 DOSAGE FORM, QW
     Route: 042
     Dates: start: 20140827

REACTIONS (5)
  - Asthenia [Recovered/Resolved]
  - Tonsillitis [Recovered/Resolved]
  - Oropharyngeal pain [Recovered/Resolved]
  - Removal of foreign body from throat [Recovered/Resolved]
  - Pyrexia [Recovered/Resolved]

NARRATIVE: CASE EVENT DATE: 20190413
